FAERS Safety Report 6013490-8 (Version None)
Quarter: 2008Q4

REPORT INFORMATION
  Report Type: 
  Country: None (occurrence: None)
  Receive Date: 20081219
  Receipt Date: 20081210
  Transmission Date: 20090506
  Serious: Yes (Other)
  Sender: FDA-Public Use
  Company Number: CA-JNJFOC-20081203270

PATIENT
  Age: 21 Year
  Sex: Female

DRUGS (5)
  1. REMICADE [Suspect]
     Route: 042
  2. REMICADE [Suspect]
     Route: 042
  3. REMICADE [Suspect]
     Indication: CROHN'S DISEASE
     Dosage: DOSE DOSES ON UNKNOWN DATES FOR INDUCTION DOSING AT 0/2/6
     Route: 042
  4. AZATHIOPRINE [Concomitant]
  5. METHOTREXATE [Concomitant]

REACTIONS (2)
  - ARTHRALGIA [None]
  - SYSTEMIC LUPUS ERYTHEMATOSUS [None]
